FAERS Safety Report 23642897 (Version 1)
Quarter: 2024Q1

REPORT INFORMATION
  Report Type: Spontaneous
  Country: GB (occurrence: GB)
  Receive Date: 20240318
  Receipt Date: 20240318
  Transmission Date: 20240410
  Serious: Yes (Other)
  Sender: FDA-Public Use
  Company Number: None

PATIENT
  Age: 68 Year
  Sex: Female
  Weight: 54 kg

DRUGS (16)
  1. RAMIPRIL [Suspect]
     Active Substance: RAMIPRIL
     Route: 065
     Dates: start: 20240213
  2. POLYETHYLENE GLYCOL 3350\POTASSIUM CHLORIDE\SODIUM BICARBONATE\SODIUM [Concomitant]
     Active Substance: POLYETHYLENE GLYCOL 3350\POTASSIUM CHLORIDE\SODIUM BICARBONATE\SODIUM CHLORIDE
     Dosage: 1-2 SACHETS DAILY AS DIRECTED, DURATION: 30 DAYS
     Dates: start: 20231214, end: 20240113
  3. AMLODIPINE [Concomitant]
     Active Substance: AMLODIPINE BESYLATE
     Dosage: PLEASE GIVE A BRAND WITH A..., DURATION: 15 DAYS
     Dates: start: 20240129, end: 20240213
  4. DYMISTA [Concomitant]
     Active Substance: AZELASTINE HYDROCHLORIDE\FLUTICASONE PROPIONATE
     Dosage: EACH NOSTRIL
     Dates: start: 20230602
  5. ESTRADIOL [Concomitant]
     Active Substance: ESTRADIOL
     Dosage: INSERT
     Dates: start: 20231115
  6. ISPAGHULA EXTRACT\PSYLLIUM [Concomitant]
     Active Substance: HERBALS\PLANTAGO OVATA SEED\PLANTAGO SEED
     Dosage: TIME INTERVAL: AS NECESSARY: SACHET
     Dates: start: 20230403
  7. LEVOTHYROXINE [Concomitant]
     Active Substance: LEVOTHYROXINE\LEVOTHYROXINE SODIUM
     Dosage: TOTAL DAILY DOSE 75MCG
     Dates: start: 20230703
  8. DICLOFENAC DIETHYLAMINE [Concomitant]
     Active Substance: DICLOFENAC DIETHYLAMINE
     Dosage: TIME INTERVAL: 0.33333333 DAYS: APPLY
     Dates: start: 20240213
  9. HYPROMELLOSES [Concomitant]
     Active Substance: HYPROMELLOSES
     Dosage: USE WHEN REQUIRED; EVERY 2-3 HOURS
     Dates: start: 20230403
  10. OMEPRAZOLE [Concomitant]
     Active Substance: OMEPRAZOLE
     Dosage: DURATION: 119 DAYS
     Dates: start: 20231002, end: 20240129
  11. DOXAZOSIN [Concomitant]
     Active Substance: DOXAZOSIN MESYLATE
     Dosage: DURATION: 52 DAYS
     Dates: start: 20231208, end: 20240129
  12. LERCANIDIPINE HYDROCHLORIDE [Concomitant]
     Active Substance: LERCANIDIPINE HYDROCHLORIDE
     Dosage: DURATION: 46 DAYS
     Dates: start: 20231023, end: 20231208
  13. CETIRIZINE [Concomitant]
     Active Substance: CETIRIZINE HYDROCHLORIDE
     Dates: start: 20230602
  14. HYDRALAZINE [Concomitant]
     Active Substance: HYDRALAZINE HYDROCHLORIDE
     Dosage: DURATION: 5 DAYS
     Dates: start: 20240124, end: 20240129
  15. FOLIC ACID [Concomitant]
     Active Substance: FOLIC ACID
     Dosage: EXCEPT ON THE DAY YOU TAKE METHO..., DURATION: 241 DAYS
     Dates: start: 20230602, end: 20240129
  16. BEMPEDOIC ACID [Concomitant]
     Active Substance: BEMPEDOIC ACID
     Dosage: DURATION: 147 DAYS
     Dates: start: 20231011, end: 20240306

REACTIONS (1)
  - Lip swelling [Recovering/Resolving]
